FAERS Safety Report 7318131-5 (Version None)
Quarter: 2011Q1

REPORT INFORMATION
  Report Type: 
  Country: None (occurrence: None)
  Receive Date: 20110228
  Receipt Date: 20110212
  Transmission Date: 20110831
  Serious: No
  Sender: FDA-Public Use
  Company Number: US-BIOGENIDEC-2010BI039991

PATIENT
  Sex: Female

DRUGS (1)
  1. TYSABRI [Suspect]
     Indication: MULTIPLE SCLEROSIS
     Route: 042
     Dates: start: 20100930

REACTIONS (12)
  - DEPRESSED MOOD [None]
  - OSTEOPOROSIS [None]
  - VITAMIN D DEFICIENCY [None]
  - SINUSITIS [None]
  - POOR VENOUS ACCESS [None]
  - FIBROMYALGIA [None]
  - FEELING ABNORMAL [None]
  - BLOOD CHOLESTEROL INCREASED [None]
  - CHRONIC OBSTRUCTIVE PULMONARY DISEASE [None]
  - PAIN [None]
  - DRUG INEFFECTIVE [None]
  - CONTUSION [None]
